FAERS Safety Report 21154899 (Version 1)
Quarter: 2022Q3

REPORT INFORMATION
  Report Type: Spontaneous
  Country: US (occurrence: None)
  Receive Date: 20220729
  Receipt Date: 20220729
  Transmission Date: 20221026
  Serious: Yes (Death)
  Sender: FDA-Public Use
  Company Number: None

PATIENT
  Age: 58 Year
  Sex: Female

DRUGS (1)
  1. MERCAPTOPURINE [Suspect]
     Active Substance: MERCAPTOPURINE
     Dosage: FREQUENCY : DAILY;?
     Route: 048
     Dates: start: 202112, end: 202201

REACTIONS (1)
  - Death [None]

NARRATIVE: CASE EVENT DATE: 20220728
